FAERS Safety Report 7146268-2 (Version None)
Quarter: 2010Q4

REPORT INFORMATION
  Report Type: 
  Country: None (occurrence: None)
  Receive Date: 20101208
  Receipt Date: 20101125
  Transmission Date: 20110411
  Serious: Yes (Other)
  Sender: FDA-Public Use
  Company Number: SE-ACTELION-A-CH2010-38916

PATIENT
  Sex: Female

DRUGS (6)
  1. BOSENTAN TABLET 62.5 MG EU [Suspect]
     Indication: PULMONARY ARTERIAL HYPERTENSION
     Dosage: 93.75 MG, BID
     Route: 048
     Dates: start: 20100722
  2. BOSENTAN TABLET 62.5 MG EU [Suspect]
     Dosage: 62.5 MG, BID
     Route: 048
     Dates: start: 20100712, end: 20100721
  3. BOSENTAN TABLET 62.5 MG EU [Suspect]
     Dosage: 62.5 MG, BID
     Route: 048
     Dates: start: 20100701, end: 20100801
  4. ZOPIKLON [Concomitant]
  5. ISOSORBIDE MONONITRATE [Concomitant]
  6. WARFARIN SODIUM [Concomitant]

REACTIONS (4)
  - BURNING SENSATION [None]
  - DIZZINESS [None]
  - HEADACHE [None]
  - NAUSEA [None]
